FAERS Safety Report 22388390 (Version 1)
Quarter: 2023Q2

REPORT INFORMATION
  Report Type: Report from Study
  Country: IT (occurrence: IT)
  Receive Date: 20230531
  Receipt Date: 20230531
  Transmission Date: 20230721
  Serious: Yes (Other)
  Sender: FDA-Public Use
  Company Number: IT-GLAXOSMITHKLINE-IT2023EME074366

PATIENT

DRUGS (2)
  1. BELANTAMAB MAFODOTIN [Suspect]
     Active Substance: BELANTAMAB MAFODOTIN
     Indication: Plasma cell myeloma
     Dosage: 2.5 MG/KG, Q3W EVERY 3 WEEKS)
     Dates: start: 20220307, end: 20230303
  2. BELANTAMAB MAFODOTIN [Suspect]
     Active Substance: BELANTAMAB MAFODOTIN
     Dosage: 1.9 MG, Q3W (EVERY 3 WEEKS)

REACTIONS (3)
  - Keratopathy [Recovered/Resolved]
  - Plasma cell myeloma [Recovered/Resolved]
  - Product use issue [Unknown]
